FAERS Safety Report 9814505 (Version 1)
Quarter: 2014Q1

REPORT INFORMATION
  Report Type: Spontaneous
  Country: US (occurrence: US)
  Receive Date: 20140113
  Receipt Date: 20140113
  Transmission Date: 20141002
  Serious: Yes (Death)
  Sender: FDA-Public Use
  Company Number: US-PFIZER INC-2014006454

PATIENT
  Age: 22 Year
  Sex: Female

DRUGS (5)
  1. ALPRAZOLAM [Suspect]
     Dosage: UNK
     Route: 048
  2. CARBAMAZEPINE [Suspect]
     Dosage: UNK
  3. ACETAMINOPHEN W/HYDROCODONE BITARTRATE [Suspect]
     Dosage: UNK
  4. DIAZEPAM [Suspect]
     Dosage: UNK
     Route: 048
  5. TRAMADOL [Suspect]
     Dosage: UNK

REACTIONS (3)
  - Completed suicide [Fatal]
  - Cardiac arrest [Fatal]
  - Respiratory arrest [Fatal]
